FAERS Safety Report 5612871-1 (Version None)
Quarter: 2008Q1

REPORT INFORMATION
  Report Type: 
  Country: None (occurrence: None)
  Receive Date: 20080128
  Receipt Date: 20080114
  Transmission Date: 20080703
  Serious: Yes (Other)
  Sender: FDA-Public Use
  Company Number: 8028471

PATIENT
  Age: 50 Year
  Sex: Female
  Weight: 67 kg

DRUGS (3)
  1. KEPPRA [Suspect]
     Indication: EPILEPSY
     Dosage: 250 MG 2/D
     Dates: start: 20071030
  2. CARBAMAZEPINE EXTENDED-RELEASE [Suspect]
     Indication: EPILEPSY
     Dosage: 600 MG 2/D
  3. LYRICA [Suspect]
     Indication: EPILEPSY
     Dosage: 150 2/D

REACTIONS (1)
  - THROMBOCYTOPENIA [None]
